FAERS Safety Report 4865380-1 (Version None)
Quarter: 2005Q4

REPORT INFORMATION
  Report Type: 
  Country: None (occurrence: None)
  Receive Date: 20051223
  Receipt Date: 20051216
  Transmission Date: 20060501
  Serious: Yes (Other)
  Sender: FDA-Public Use
  Company Number: 2005CG02135

PATIENT
  Age: 71 Year
  Sex: Female

DRUGS (7)
  1. CRESTOR [Suspect]
     Route: 048
     Dates: start: 20050101, end: 20050101
  2. ALDACTONE [Concomitant]
  3. COVERSYL [Concomitant]
  4. KREDEX [Concomitant]
  5. DISCOTRINE [Concomitant]
  6. PREVISCAN [Concomitant]
  7. LEVOTHYROXINE SODIUM [Concomitant]

REACTIONS (1)
  - HYPONATRAEMIA [None]
